FAERS Safety Report 6986553-8 (Version None)
Quarter: 2010Q3

REPORT INFORMATION
  Report Type: 
  Country: None (occurrence: None)
  Receive Date: 20100915
  Receipt Date: 20090806
  Transmission Date: 20110219
  Serious: Yes (Other)
  Sender: FDA-Public Use
  Company Number: US-WYE-H10157209

PATIENT
  Sex: Female

DRUGS (3)
  1. PRISTIQ [Suspect]
     Indication: DEPRESSION
     Route: 048
     Dates: start: 20090501, end: 20090701
  2. PRISTIQ [Suspect]
     Dosage: TAPERED OFF
     Route: 048
     Dates: start: 20090701
  3. LAMICTAL [Concomitant]
     Indication: CONVULSION

REACTIONS (3)
  - CONDITION AGGRAVATED [None]
  - HYPONATRAEMIA [None]
  - INAPPROPRIATE ANTIDIURETIC HORMONE SECRETION [None]
